FAERS Safety Report 17523426 (Version 1)
Quarter: 2020Q1

REPORT INFORMATION
  Report Type: Spontaneous
  Country: CN (occurrence: CN)
  Receive Date: 20200310
  Receipt Date: 20200310
  Transmission Date: 20200409
  Serious: Yes (Hospitalization, Other)
  Sender: FDA-Public Use
  Company Number: CN-GE HEALTHCARE LIFE SCIENCES-2020CSU000953

PATIENT

DRUGS (5)
  1. OMNIPAQUE [Suspect]
     Active Substance: IOHEXOL
     Indication: VOMITING
  2. OMNIPAQUE [Suspect]
     Active Substance: IOHEXOL
     Indication: ANGIOGRAM
     Dosage: UNK UNK, SINGLE
     Route: 013
  3. OMNIPAQUE [Suspect]
     Active Substance: IOHEXOL
     Indication: HEADACHE
  4. OMNIPAQUE [Suspect]
     Active Substance: IOHEXOL
     Indication: COMPUTERISED TOMOGRAM HEAD
  5. OMNIPAQUE [Suspect]
     Active Substance: IOHEXOL
     Indication: CHEST DISCOMFORT

REACTIONS (1)
  - IIIrd nerve injury [Recovered/Resolved]
